FAERS Safety Report 16469960 (Version 1)
Quarter: 2019Q2

REPORT INFORMATION
  Report Type: Report from Study
  Country: US (occurrence: US)
  Receive Date: 20190624
  Receipt Date: 20190624
  Transmission Date: 20190711
  Serious: Yes (Other)
  Sender: FDA-Public Use
  Company Number: US-JNJFOC-20190617707

PATIENT
  Age: 85 Year
  Sex: Female

DRUGS (11)
  1. FLUOXETINE HCL [Concomitant]
     Active Substance: FLUOXETINE HYDROCHLORIDE
  2. MIRTAZAPINE. [Concomitant]
     Active Substance: MIRTAZAPINE
  3. TRAZODONE HYDROCHLORIDE. [Concomitant]
     Active Substance: TRAZODONE HYDROCHLORIDE
  4. METOPROLOL TARTRATE. [Concomitant]
     Active Substance: METOPROLOL TARTRATE
  5. LYRICA [Concomitant]
     Active Substance: PREGABALIN
  6. AMLODIPINE [Concomitant]
     Active Substance: AMLODIPINE BESYLATE
  7. ALEVE [Concomitant]
     Active Substance: NAPROXEN SODIUM
  8. IMBRUVICA [Suspect]
     Active Substance: IBRUTINIB
     Indication: LYMPHOCYTIC LEUKAEMIA
     Dosage: 420 MG, QD
     Route: 048
     Dates: start: 2019
  9. IRBESARTAN. [Concomitant]
     Active Substance: IRBESARTAN
  10. MELATONIN [Concomitant]
     Active Substance: MELATONIN
  11. PRILOSEC [Concomitant]
     Active Substance: OMEPRAZOLE MAGNESIUM

REACTIONS (3)
  - Nephrolithiasis [Recovering/Resolving]
  - Cystitis noninfective [Recovering/Resolving]
  - Bladder pain [Recovering/Resolving]

NARRATIVE: CASE EVENT DATE: 20190605
